FAERS Safety Report 9991544 (Version 2)
Quarter: 2014Q1

REPORT INFORMATION
  Report Type: Spontaneous
  Country: US (occurrence: US)
  Receive Date: 20140310
  Receipt Date: 20140310
  Transmission Date: 20141002
  Serious: No
  Sender: FDA-Public Use
  Company Number: US-LUNDBECK-DKLU1094602

PATIENT
  Age: 2 Year
  Sex: Female

DRUGS (4)
  1. ONFI [Suspect]
     Indication: PRODUCT USED FOR UNKNOWN INDICATION
     Route: 048
  2. ONFI [Suspect]
     Route: 048
  3. ONFI [Suspect]
  4. ONFI (ORAL SUSPENSION) [Suspect]
     Indication: PRODUCT USED FOR UNKNOWN INDICATION
     Dates: start: 20131016

REACTIONS (4)
  - Product taste abnormal [Unknown]
  - Vomiting [Unknown]
  - Agitation [Unknown]
  - Incorrect dose administered [Unknown]
